FAERS Safety Report 20645368 (Version 1)
Quarter: 2022Q1

REPORT INFORMATION
  Report Type: Spontaneous
  Country: US (occurrence: None)
  Receive Date: 20220328
  Receipt Date: 20220328
  Transmission Date: 20220423
  Serious: Yes (Hospitalization)
  Sender: FDA-Public Use
  Company Number: None

PATIENT
  Age: 57 Year
  Sex: Male
  Weight: 73 kg

DRUGS (10)
  1. WARFARIN [Suspect]
     Active Substance: WARFARIN
     Indication: Mitral valve replacement
     Dosage: FREQUENCY : DAILY;?
     Route: 048
  2. WARFARIN [Suspect]
     Active Substance: WARFARIN
     Indication: Cardiac valve prosthesis user
  3. ASPIRIN [Concomitant]
     Active Substance: ASPIRIN
  4. atorvastatin 80 [Concomitant]
  5. vitamin D 50,000 units [Concomitant]
  6. FUROSEMIDE [Concomitant]
     Active Substance: FUROSEMIDE
  7. midodrine 5 mg [Concomitant]
  8. OMEPRAZOLE [Concomitant]
     Active Substance: OMEPRAZOLE
  9. SEVELAMER [Concomitant]
     Active Substance: SEVELAMER
  10. ACETAMINOPHEN [Concomitant]
     Active Substance: ACETAMINOPHEN

REACTIONS (10)
  - Hypotension [None]
  - Dialysis [None]
  - Fatigue [None]
  - Dyspnoea [None]
  - Melaena [None]
  - International normalised ratio increased [None]
  - Treatment noncompliance [None]
  - Self-medication [None]
  - Gastrointestinal haemorrhage [None]
  - Ulcer haemorrhage [None]

NARRATIVE: CASE EVENT DATE: 20220314
